FAERS Safety Report 13273399 (Version 2)
Quarter: 2017Q1

REPORT INFORMATION
  Report Type: Spontaneous
  Country: US (occurrence: US)
  Receive Date: 20170227
  Receipt Date: 20170317
  Transmission Date: 20170428
  Serious: No
  Sender: FDA-Public Use
  Company Number: US-009507513-1702USA006502

PATIENT
  Age: 26 Year
  Sex: Female

DRUGS (6)
  1. BUSPIRONE HYDROCHLORIDE. [Concomitant]
     Active Substance: BUSPIRONE HYDROCHLORIDE
     Dosage: UNK
  2. ZEPATIER [Suspect]
     Active Substance: ELBASVIR\GRAZOPREVIR
     Indication: HEPATITIS C
     Dosage: 1 TABLET BY MOUTH EVERY DAY/ TOTAL DAILY DOSE: 50-100 MG
     Route: 048
     Dates: start: 201702
  3. PRAZOSIN [Concomitant]
     Active Substance: PRAZOSIN
     Dosage: UNK
  4. OXYCODONE HYDROCHLORIDE. [Concomitant]
     Active Substance: OXYCODONE HYDROCHLORIDE
     Dosage: UNK
  5. DIAZEPAM. [Concomitant]
     Active Substance: DIAZEPAM
     Dosage: UNK
  6. CLORAZEPATE DIPOTASSIUM. [Concomitant]
     Active Substance: CLORAZEPATE DIPOTASSIUM
     Dosage: UNK

REACTIONS (5)
  - Fatigue [Not Recovered/Not Resolved]
  - Insomnia [Not Recovered/Not Resolved]
  - Nausea [Recovered/Resolved]
  - Agitation [Not Recovered/Not Resolved]
  - Decreased appetite [Not Recovered/Not Resolved]

NARRATIVE: CASE EVENT DATE: 201702
